FAERS Safety Report 19325229 (Version 2)
Quarter: 2022Q4

REPORT INFORMATION
  Report Type: Report from Study
  Country: CA (occurrence: CA)
  Receive Date: 20210528
  Receipt Date: 20221028
  Transmission Date: 20230113
  Serious: Yes (Other)
  Sender: FDA-Public Use
  Company Number: CA-NOVARTISPH-PHHY2014CA002268

PATIENT
  Age: 52 Year
  Sex: Female

DRUGS (5)
  1. SANDOSTATIN LAR DEPOT [Suspect]
     Active Substance: OCTREOTIDE ACETATE
     Indication: Carcinoid tumour of the small bowel
     Dosage: 20 MG, QMO
     Route: 030
     Dates: start: 20090525
  2. SANDOSTATIN LAR DEPOT [Suspect]
     Active Substance: OCTREOTIDE ACETATE
     Dosage: 30 MG, QMO
     Route: 030
     Dates: start: 20090525
  3. SANDOSTATIN LAR DEPOT [Suspect]
     Active Substance: OCTREOTIDE ACETATE
  4. PERINDOPRIL [Suspect]
     Active Substance: PERINDOPRIL
     Indication: Hypertension
     Dosage: 2 MG, BID
     Route: 065
  5. PERINDOPRIL [Suspect]
     Active Substance: PERINDOPRIL
     Dosage: 2 MG, QD
     Route: 065

REACTIONS (5)
  - Type 2 diabetes mellitus [Unknown]
  - Blood pressure systolic increased [Unknown]
  - Arthralgia [Unknown]
  - Intermittent claudication [Unknown]
  - Hypertension [Unknown]

NARRATIVE: CASE EVENT DATE: 20140106
